FAERS Safety Report 16189641 (Version 1)
Quarter: 2019Q2

REPORT INFORMATION
  Report Type: Spontaneous
  Country: IT (occurrence: IT)
  Receive Date: 20190412
  Receipt Date: 20190412
  Transmission Date: 20190711
  Serious: Yes (Other)
  Sender: FDA-Public Use
  Company Number: IT-TEVA-2019-IT-1036123

PATIENT
  Age: 16 Year
  Sex: Female
  Weight: 47 kg

DRUGS (1)
  1. MESALAZINE [Suspect]
     Active Substance: MESALAMINE
     Indication: COLITIS ULCERATIVE
     Dosage: 48.5 MILLIGRAM DAILY;
     Route: 048
     Dates: start: 20130101, end: 20190114

REACTIONS (1)
  - Nephritis [Recovering/Resolving]

NARRATIVE: CASE EVENT DATE: 20190214
